FAERS Safety Report 7423191-7 (Version None)
Quarter: 2011Q2

REPORT INFORMATION
  Report Type: 
  Country: None (occurrence: None)
  Receive Date: 20110419
  Receipt Date: 20101021
  Transmission Date: 20111010
  Serious: Yes (Hospitalization, Other)
  Sender: FDA-Public Use
  Company Number: US-BAYER-201020851NA

PATIENT
  Age: 18 Year
  Sex: Female
  Weight: 56.689 kg

DRUGS (3)
  1. HYDROCODONE [Concomitant]
     Indication: PAIN
     Dosage: UNK
     Route: 048
     Dates: start: 20080625
  2. YAZ [Suspect]
     Indication: PREMENSTRUAL SYNDROME
     Dosage: 1 DF, QD
     Route: 048
     Dates: start: 20080601, end: 20090601
  3. NSAID'S [Concomitant]

REACTIONS (7)
  - CHOLECYSTITIS CHRONIC [None]
  - GALLBLADDER POLYP [None]
  - CHOLELITHIASIS [None]
  - NAUSEA [None]
  - GALLBLADDER CHOLESTEROLOSIS [None]
  - GALLBLADDER INJURY [None]
  - ABDOMINAL PAIN UPPER [None]
